FAERS Safety Report 24864988 (Version 1)
Quarter: 2025Q1

REPORT INFORMATION
  Report Type: Spontaneous
  Country: US (occurrence: US)
  Receive Date: 20250121
  Receipt Date: 20250121
  Transmission Date: 20250409
  Serious: Yes (Death, Hospitalization, Other)
  Sender: Agepha Pharmaceuticals
  Company Number: US-AGEPHA PHARMA FZ LLC-AGP202501-000009

PATIENT
  Age: 78 Year
  Sex: Male

DRUGS (4)
  1. COLCHICINE [Suspect]
     Active Substance: COLCHICINE
     Indication: Pericarditis
     Route: 048
  2. LEVOTHYROXINE [Concomitant]
     Active Substance: LEVOTHYROXINE
     Indication: Product used for unknown indication
     Route: 065
  3. ROSUVASTATIN [Concomitant]
     Active Substance: ROSUVASTATIN
     Indication: Product used for unknown indication
     Route: 065
  4. DOXYCYCLINE [Concomitant]
     Active Substance: DOXYCYCLINE
     Indication: Product used for unknown indication
     Route: 065

REACTIONS (11)
  - Shock [Fatal]
  - Pleural effusion [Unknown]
  - Completed suicide [Fatal]
  - Respiratory failure [Fatal]
  - Cardiac arrest [Fatal]
  - Atrial fibrillation [Unknown]
  - Nausea [Unknown]
  - Vomiting [Unknown]
  - Metabolic acidosis [Unknown]
  - Bradycardia [Unknown]
  - Intentional overdose [Fatal]
